FAERS Safety Report 7254921-5 (Version None)
Quarter: 2011Q1

REPORT INFORMATION
  Report Type: 
  Country: None (occurrence: None)
  Receive Date: 20110129
  Receipt Date: 20100322
  Transmission Date: 20110831
  Serious: Yes (Hospitalization, Other)
  Sender: FDA-Public Use
  Company Number: US-ABBOTT-10P-163-0624624-00

PATIENT
  Sex: Female
  Weight: 44.492 kg

DRUGS (6)
  1. METOPROLOL [Concomitant]
     Indication: MYOCARDIAL INFARCTION
     Dates: start: 20100101
  2. MANY OTHER UNKNOWN MEDICATIONS [Concomitant]
     Indication: PRODUCT USED FOR UNKNOWN INDICATION
  3. HUMIRA [Suspect]
     Indication: RHEUMATOID ARTHRITIS
     Route: 058
     Dates: start: 20080101, end: 20100122
  4. PLAVIX [Concomitant]
     Indication: MYOCARDIAL INFARCTION
     Dates: start: 20100101
  5. DIGOXIN [Concomitant]
     Indication: MYOCARDIAL INFARCTION
     Dates: start: 20100101
  6. VITAMIN D [Concomitant]
     Indication: PRODUCT USED FOR UNKNOWN INDICATION
     Dates: start: 20100101

REACTIONS (3)
  - MYOCARDIAL INFARCTION [None]
  - CHEST PAIN [None]
  - PAIN IN EXTREMITY [None]
